FAERS Safety Report 10052729 (Version 1)
Quarter: 2014Q2

REPORT INFORMATION
  Report Type: Spontaneous
  Country: SE (occurrence: SE)
  Receive Date: 20140402
  Receipt Date: 20140402
  Transmission Date: 20141212
  Serious: Yes (Other)
  Sender: FDA-Public Use
  Company Number: SE-PFIZER INC-2014088534

PATIENT
  Age: 34 Year
  Sex: Female

DRUGS (1)
  1. CELEBRA [Suspect]
     Dosage: 200 MG

REACTIONS (1)
  - Asthma [Recovered/Resolved]
